FAERS Safety Report 6086511-4 (Version None)
Quarter: 2009Q1

REPORT INFORMATION
  Report Type: 
  Country: None (occurrence: None)
  Receive Date: 20090223
  Receipt Date: 20090216
  Transmission Date: 20090719
  Serious: Yes (Hospitalization, Other)
  Sender: FDA-Public Use
  Company Number: JP-JNJFOC-20090200329

PATIENT
  Age: 67 Year
  Sex: Male

DRUGS (2)
  1. FENTANYL [Suspect]
     Indication: DRUG USE FOR UNKNOWN INDICATION
     Route: 062
  2. FENTANYL [Suspect]
     Route: 062

REACTIONS (2)
  - MALIGNANT NEOPLASM PROGRESSION [None]
  - NAUSEA [None]
